FAERS Safety Report 6009827-6 (Version None)
Quarter: 2008Q4

REPORT INFORMATION
  Report Type: 
  Country: None (occurrence: None)
  Receive Date: 20081217
  Receipt Date: 20081201
  Transmission Date: 20090506
  Serious: No
  Sender: FDA-Public Use
  Company Number: US-BAYER-200839991NA

PATIENT
  Age: 15 Year
  Sex: Female

DRUGS (1)
  1. YAZ [Suspect]
     Indication: CYST
     Route: 048
     Dates: start: 20080901

REACTIONS (3)
  - NAUSEA [None]
  - NO ADVERSE EVENT [None]
  - VOMITING [None]
